FAERS Safety Report 4378238-1 (Version None)
Quarter: 2004Q2

REPORT INFORMATION
  Report Type: 
  Country: None (occurrence: None)
  Receive Date: 20040614
  Receipt Date: 20040614
  Transmission Date: 20050107
  Serious: Yes (Other)
  Sender: FDA-Public Use
  Company Number: None

PATIENT
  Age: 87 Year
  Sex: Female

DRUGS (3)
  1. PAXIL CR [Suspect]
     Indication: AGITATION
     Dosage: ONE QD (DAILY)
     Dates: start: 20040501
  2. PAXIL CR [Suspect]
     Indication: ANGER
     Dosage: ONE QD (DAILY)
     Dates: start: 20040501
  3. PAXIL CR [Suspect]
     Indication: ANXIETY
     Dosage: ONE QD (DAILY)
     Dates: start: 20040501

REACTIONS (3)
  - DRUG INEFFECTIVE [None]
  - DRUG WITHDRAWAL SYNDROME [None]
  - PHARMACEUTICAL PRODUCT COMPLAINT [None]
